FAERS Safety Report 7577888-9 (Version None)
Quarter: 2011Q2

REPORT INFORMATION
  Report Type: 
  Country: None (occurrence: None)
  Receive Date: 20110628
  Receipt Date: 20110620
  Transmission Date: 20111010
  Serious: Yes (Hospitalization)
  Sender: FDA-Public Use
  Company Number: PHHY2011JP55943

PATIENT
  Age: 40 Year
  Sex: Female

DRUGS (2)
  1. TASIGNA [Suspect]
     Dosage: TEMPORARILY INTERRUPTED
     Route: 048
     Dates: start: 20110501
  2. TASIGNA [Suspect]
     Dosage: 800 MG, UNK
     Route: 048
     Dates: end: 20110619

REACTIONS (2)
  - DIARRHOEA [None]
  - ENTEROCOLITIS [None]
